FAERS Safety Report 12745996 (Version 1)
Quarter: 2016Q3

REPORT INFORMATION
  Report Type: Spontaneous
  Country: US (occurrence: US)
  Receive Date: 20160915
  Receipt Date: 20160915
  Transmission Date: 20161109
  Serious: No
  Sender: FDA-Public Use
  Company Number: US-GLAXOSMITHKLINE-US2016134008

PATIENT
  Sex: Female

DRUGS (3)
  1. PREVACID 24 HR [Suspect]
     Active Substance: LANSOPRAZOLE
     Indication: GASTROOESOPHAGEAL REFLUX DISEASE
     Dosage: 15 MG, QD
     Route: 048
     Dates: start: 20160801, end: 201609
  2. PREVACID 24 HR [Suspect]
     Active Substance: LANSOPRAZOLE
     Indication: DYSPEPSIA
  3. LAMISIL AT [Suspect]
     Active Substance: TERBINAFINE HYDROCHLORIDE
     Route: 061

REACTIONS (9)
  - Product use issue [Recovered/Resolved]
  - Blister [Recovering/Resolving]
  - Incorrect drug administration duration [Recovered/Resolved]
  - Dysphonia [Unknown]
  - Nervousness [Unknown]
  - Depression [Unknown]
  - Drug hypersensitivity [Not Recovered/Not Resolved]
  - Insomnia [Unknown]
  - Rash pruritic [Recovering/Resolving]
